FAERS Safety Report 16958164 (Version 2)
Quarter: 2019Q4

REPORT INFORMATION
  Report Type: Report from Study
  Country: CA (occurrence: CA)
  Receive Date: 20191024
  Receipt Date: 20191118
  Transmission Date: 20200122
  Serious: Yes (Death, Hospitalization, Other)
  Sender: FDA-Public Use
  Company Number: CA-AMGEN-CANSL2019172477

PATIENT
  Age: 66 Year
  Sex: Male
  Weight: 75.09 kg

DRUGS (6)
  1. IXAZOMIB [Concomitant]
     Active Substance: IXAZOMIB
     Indication: PLASMA CELL MYELOMA
     Dosage: UNK
  2. NEUPOGEN [Suspect]
     Active Substance: FILGRASTIM
     Indication: HAEMATOPOIETIC STEM CELL MOBILISATION
     Dosage: 300 MICROGRAM
     Route: 065
     Dates: start: 20141020, end: 201410
  3. NPLATE [Suspect]
     Active Substance: ROMIPLOSTIM
     Indication: PLASMA CELL MYELOMA
     Dosage: 250 MICROGRAM, QWK
     Route: 065
     Dates: start: 20191023, end: 2019
  4. KYPROLIS [Suspect]
     Active Substance: CARFILZOMIB
     Indication: PLASMA CELL MYELOMA
     Dosage: 27 MILLIGRAM/SQ. METER; DAYS 1, 2, 8, 9, 15, 16 Q28 DAYS
     Route: 065
     Dates: start: 20170208, end: 2019
  5. DEXAMETHASONE. [Concomitant]
     Active Substance: DEXAMETHASONE
     Indication: PLASMA CELL MYELOMA
     Dosage: UNK
  6. SELINEXOR [Concomitant]
     Active Substance: SELINEXOR
     Dosage: UNK

REACTIONS (3)
  - Death [Fatal]
  - Renal failure [Unknown]
  - Platelet count decreased [Not Recovered/Not Resolved]

NARRATIVE: CASE EVENT DATE: 201909
